FAERS Safety Report 12834621 (Version 1)
Quarter: 2016Q4

REPORT INFORMATION
  Report Type: Spontaneous
  Country: BR (occurrence: BR)
  Receive Date: 20161010
  Receipt Date: 20161010
  Transmission Date: 20170207
  Serious: Yes (Other)
  Sender: FDA-Public Use
  Company Number: BR-PFIZER INC-2016390033

PATIENT
  Age: 57 Year
  Sex: Female

DRUGS (7)
  1. ESTREVA [Concomitant]
     Active Substance: ESTRADIOL
  2. FRONTAL [Suspect]
     Active Substance: ALPRAZOLAM
     Dosage: 1.5 MG, UNK
     Route: 048
  3. MIRENA [Concomitant]
     Active Substance: LEVONORGESTREL
  4. FRONTAL [Suspect]
     Active Substance: ALPRAZOLAM
     Indication: PANIC DISORDER
     Dosage: 0.25 MG
     Dates: start: 2015, end: 2015
  5. FRONTAL [Suspect]
     Active Substance: ALPRAZOLAM
     Dosage: 1 MG, 2X/DAY
     Route: 048
  6. FRONTAL [Suspect]
     Active Substance: ALPRAZOLAM
     Dosage: 1 MG, UNK
     Dates: start: 201608
  7. EFFEXOR XR [Concomitant]
     Active Substance: VENLAFAXINE HYDROCHLORIDE
     Dosage: UNK
     Dates: start: 2015

REACTIONS (4)
  - Drug ineffective [Recovered/Resolved]
  - Insomnia [Recovered/Resolved]
  - Ill-defined disorder [Recovered/Resolved]
  - Retinal vein thrombosis [Recovered/Resolved]

NARRATIVE: CASE EVENT DATE: 2015
